FAERS Safety Report 9820019 (Version 1)
Quarter: 2013Q3

REPORT INFORMATION
  Report Type: Spontaneous
  Country: US (occurrence: None)
  Receive Date: 20130924
  Receipt Date: 20130924
  Transmission Date: 20140515
  Serious: Yes (Other)
  Sender: FDA-Public Use
  Company Number: 2013000255

PATIENT
  Age: 60 Year
  Sex: Female

DRUGS (1)
  1. OSPHENA [Suspect]
     Indication: PRODUCT USED FOR UNKNOWN INDICATION
     Dosage: 60 MG QD FOR 5 WEEKS, ORAL
     Route: 048
     Dates: start: 201307

REACTIONS (2)
  - Poor quality sleep [None]
  - Hot flush [None]
